FAERS Safety Report 9662509 (Version 2)
Quarter: 2013Q4

REPORT INFORMATION
  Report Type: Spontaneous
  Country: US (occurrence: US)
  Receive Date: 20131031
  Receipt Date: 20131031
  Transmission Date: 20140711
  Serious: No
  Sender: FDA-Public Use
  Company Number: US-PURDUE-USA-2010-0048768

PATIENT
  Age: 29 Year
  Sex: Male
  Weight: 83 kg

DRUGS (8)
  1. OXYCONTIN (NDA 22-272) [Suspect]
     Indication: PAIN
     Dosage: 10 MG, TID
     Dates: start: 20100801, end: 20110307
  2. SOMA [Concomitant]
     Indication: PRODUCT USED FOR UNKNOWN INDICATION
     Dosage: 350 MG, Q6- 8H
  3. PERCOCET                           /00446701/ [Concomitant]
     Indication: PRODUCT USED FOR UNKNOWN INDICATION
     Dosage: 325 MG, Q6H PRN
  4. XANAX [Concomitant]
     Indication: PRODUCT USED FOR UNKNOWN INDICATION
     Dosage: .5 MG, BID
  5. ZANAFLEX [Concomitant]
     Indication: PRODUCT USED FOR UNKNOWN INDICATION
     Dosage: 6 MG, TID
  6. LEXAPRO [Concomitant]
     Indication: PRODUCT USED FOR UNKNOWN INDICATION
     Dosage: 20 DF, DAILY
  7. PRAZOSIN [Concomitant]
     Indication: NIGHTMARE
     Dosage: 6 MG, BID
  8. CELEBREX [Concomitant]
     Indication: PRODUCT USED FOR UNKNOWN INDICATION
     Dosage: 200 MG, DAILY

REACTIONS (5)
  - Swollen tongue [Recovered/Resolved]
  - Lymphadenopathy [Recovered/Resolved]
  - Pharyngeal oedema [Recovered/Resolved]
  - Speech disorder [Recovered/Resolved]
  - Somnolence [Recovered/Resolved]
